FAERS Safety Report 15189823 (Version 3)
Quarter: 2018Q3

REPORT INFORMATION
  Report Type: Spontaneous
  Country: US (occurrence: US)
  Receive Date: 20180724
  Receipt Date: 20180827
  Transmission Date: 20181010
  Serious: No
  Sender: FDA-Public Use
  Company Number: US-ELI_LILLY_AND_COMPANY-US201807010423

PATIENT
  Age: 65 Year
  Sex: Female

DRUGS (2)
  1. FORTEO [Suspect]
     Active Substance: TERIPARATIDE
     Indication: OSTEOPOROSIS
     Dosage: 20 UG, DAILY
     Route: 058
     Dates: start: 201805, end: 201807
  2. FORTEO [Suspect]
     Active Substance: TERIPARATIDE
     Indication: FRACTURE

REACTIONS (10)
  - Bone pain [Recovered/Resolved]
  - Pain [Unknown]
  - Vein disorder [Recovered/Resolved]
  - Fatigue [Recovered/Resolved]
  - Pruritus [Recovered/Resolved]
  - Contusion [Unknown]
  - Injection site erythema [Recovered/Resolved]
  - Hypersensitivity [Unknown]
  - Vascular pain [Recovered/Resolved]
  - Burning sensation [Unknown]

NARRATIVE: CASE EVENT DATE: 201805
